FAERS Safety Report 21727957 (Version 2)
Quarter: 2022Q4

REPORT INFORMATION
  Report Type: Spontaneous
  Country: US (occurrence: US)
  Receive Date: 20221214
  Receipt Date: 20221228
  Transmission Date: 20230113
  Serious: Yes (Other)
  Sender: FDA-Public Use
  Company Number: US-ORGANON-O2212USA000720

PATIENT
  Sex: Female
  Weight: 82.993 kg

DRUGS (2)
  1. NEXPLANON [Suspect]
     Active Substance: ETONOGESTREL
     Dosage: 1 IMPLANT/ONE EVERY THREE YEARS IN THE RIGHT ARM
     Route: 059
     Dates: start: 20190501
  2. NEXPLANON [Suspect]
     Active Substance: ETONOGESTREL
     Dosage: 1 IMPLANT, IN LEFT ARM
     Route: 059
     Dates: start: 20221207

REACTIONS (7)
  - Gastric bypass [Unknown]
  - Skin atrophy [Unknown]
  - Weight decreased [Unknown]
  - Device placement issue [Not Recovered/Not Resolved]
  - Complication associated with device [Not Recovered/Not Resolved]
  - Device use error [Unknown]
  - Overdose [Unknown]

NARRATIVE: CASE EVENT DATE: 20191226
